FAERS Safety Report 4295729-2 (Version None)
Quarter: 2004Q1

REPORT INFORMATION
  Report Type: 
  Country: None (occurrence: None)
  Receive Date: 20040216
  Receipt Date: 20031021
  Transmission Date: 20041129
  Serious: No
  Sender: FDA-Public Use
  Company Number: US-GLAXOSMITHKLINE-A0430952A

PATIENT
  Sex: Male

DRUGS (7)
  1. LAMICTAL [Suspect]
     Indication: BIPOLAR DISORDER
     Dosage: 25MG TWICE PER DAY
     Route: 048
     Dates: start: 20031004, end: 20031020
  2. HUMALOG [Concomitant]
  3. HUMULIN N [Concomitant]
  4. CONCERTA [Concomitant]
  5. MULTIVITAMIN [Concomitant]
  6. TYLENOL W/ CODEINE [Concomitant]
  7. LEXAPRO [Concomitant]

REACTIONS (2)
  - IMPAIRED HEALING [None]
  - RASH [None]
